FAERS Safety Report 10164821 (Version 1)
Quarter: 2014Q2

REPORT INFORMATION
  Report Type: Spontaneous
  Country: US (occurrence: US)
  Receive Date: 20140510
  Receipt Date: 20140510
  Transmission Date: 20141212
  Serious: No
  Sender: FDA-Public Use
  Company Number: US-BRISTOL-MYERS SQUIBB COMPANY-20196697

PATIENT
  Age: 71 Year
  Sex: Female
  Weight: 84.35 kg

DRUGS (4)
  1. BYDUREON [Suspect]
     Indication: TYPE 2 DIABETES MELLITUS
     Dates: start: 20140127
  2. GLIPIZIDE [Concomitant]
  3. METFORMIN [Concomitant]
     Dosage: 1DF:750 UNIT NOS
  4. LEVEMIR [Concomitant]

REACTIONS (2)
  - Injection site pain [Unknown]
  - Product quality issue [Unknown]
